FAERS Safety Report 10910884 (Version 1)
Quarter: 2015Q1

REPORT INFORMATION
  Report Type: Spontaneous
  Country: DZ (occurrence: DZ)
  Receive Date: 20150312
  Receipt Date: 20150312
  Transmission Date: 20150721
  Serious: Yes (Other)
  Sender: FDA-Public Use
  Company Number: DZ-PFIZER INC-2015085968

PATIENT
  Age: 18 Year
  Sex: Female
  Weight: 68 kg

DRUGS (1)
  1. LYRICA [Suspect]
     Active Substance: PREGABALIN
     Dosage: 2200 MG (44 CAPSULE X 50 MG), SINGLE
     Route: 048
     Dates: start: 20150208, end: 20150208

REACTIONS (7)
  - Suicide attempt [Recovered/Resolved]
  - Vomiting [Recovered/Resolved]
  - Incoherent [Recovered/Resolved]
  - Overdose [Unknown]
  - Speech disorder [Recovered/Resolved]
  - Stupor [Recovered/Resolved]
  - Somnolence [Recovered/Resolved]

NARRATIVE: CASE EVENT DATE: 20150208
